FAERS Safety Report 6289183-9 (Version None)
Quarter: 2009Q3

REPORT INFORMATION
  Report Type: 
  Country: None (occurrence: None)
  Receive Date: 20090728
  Receipt Date: 20090715
  Transmission Date: 20100115
  Serious: Yes (Other)
  Sender: FDA-Public Use
  Company Number: 1000007683

PATIENT
  Age: 45 Year
  Sex: Male

DRUGS (4)
  1. ESCITALOPRAM OXALATE [Suspect]
     Dosage: 200 MG, ONCE, ORAL
     Route: 048
     Dates: start: 20090715, end: 20090715
  2. CEFASEL (100 MICROGRAM, TABLETS) [Suspect]
     Dosage: 200 MG, ONCE, ORAL
     Route: 048
     Dates: start: 20090715, end: 20090715
  3. INSIDON (50 MILLIGRAM, TABLETS)` [Suspect]
     Dosage: 250 MG, ONCE, ORAL
     Route: 048
     Dates: start: 20090715, end: 20090715
  4. L-THYROXINE (75 MICROGRAM, TABLETS) [Suspect]
     Dosage: 1500 MCG, ONCE, ORAL
     Route: 048
     Dates: start: 20090715, end: 20090715

REACTIONS (5)
  - INTENTIONAL OVERDOSE [None]
  - INTENTIONAL SELF-INJURY [None]
  - SOMNOLENCE [None]
  - SUICIDE ATTEMPT [None]
  - VASCULAR INJURY [None]
